FAERS Safety Report 5482397-7 (Version None)
Quarter: 2007Q4

REPORT INFORMATION
  Report Type: 
  Country: None (occurrence: None)
  Receive Date: 20071011
  Receipt Date: 20071009
  Transmission Date: 20080405
  Serious: Yes (Death)
  Sender: FDA-Public Use
  Company Number: B0487747A

PATIENT
  Age: 83 Year
  Sex: Female

DRUGS (5)
  1. TAGAMET [Suspect]
     Indication: GASTRITIS
     Route: 048
     Dates: start: 20060131, end: 20060913
  2. PREDNISOLONE [Concomitant]
     Dosage: 15MG PER DAY
     Route: 048
     Dates: start: 20060131, end: 20060915
  3. NORVASC [Concomitant]
     Indication: HYPERTENSION
     Dosage: 2.5MG PER DAY
     Route: 048
     Dates: start: 20060329, end: 20060914
  4. BASEN [Concomitant]
     Dosage: .9MG PER DAY
     Dates: start: 20060425, end: 20060914
  5. BAKTAR [Concomitant]

REACTIONS (9)
  - ACARODERMATITIS [None]
  - BLOOD POTASSIUM INCREASED [None]
  - DISSEMINATED INTRAVASCULAR COAGULATION [None]
  - PRURITUS [None]
  - RASH [None]
  - RASH PAPULAR [None]
  - SKIN EROSION [None]
  - TONGUE ULCERATION [None]
  - TOXIC EPIDERMAL NECROLYSIS [None]
